FAERS Safety Report 23416109 (Version 1)
Quarter: 2024Q1

REPORT INFORMATION
  Report Type: Spontaneous
  Country: CN (occurrence: CN)
  Receive Date: 20240118
  Receipt Date: 20240118
  Transmission Date: 20240410
  Serious: Yes (Other)
  Sender: FDA-Public Use
  Company Number: CN-PFIZER INC-PV202400005472

PATIENT
  Age: 25 Year
  Sex: Male
  Weight: 92 kg

DRUGS (9)
  1. METHOTREXATE SODIUM [Interacting]
     Active Substance: METHOTREXATE SODIUM
     Indication: Acute lymphocytic leukaemia
     Dosage: 3 G, CONTINUOUS INFUSION FOR 24 HOURS ON DAY 1
     Dates: start: 20220410, end: 20220410
  2. METHOTREXATE SODIUM [Interacting]
     Active Substance: METHOTREXATE SODIUM
     Indication: Acute lymphocytic leukaemia
     Dosage: 13 MG
     Route: 037
  3. OMEPRAZOLE SODIUM [Interacting]
     Active Substance: OMEPRAZOLE SODIUM
     Dosage: 40 MG, Q12H
  4. LEUCOVORIN CALCIUM [Concomitant]
     Active Substance: LEUCOVORIN CALCIUM
     Dosage: UNK
  5. CYCLOPHOSPHAMIDE [Concomitant]
     Active Substance: CYCLOPHOSPHAMIDE
     Indication: Acute lymphocytic leukaemia
  6. CYTARABINE [Concomitant]
     Active Substance: CYTARABINE
     Indication: Acute lymphocytic leukaemia
     Dosage: 50 MG
     Route: 037
  7. CYTARABINE [Concomitant]
     Active Substance: CYTARABINE
     Dosage: 2 G, Q12H
     Dates: start: 20220411, end: 20220412
  8. DEXAMETHASONE [Concomitant]
     Active Substance: DEXAMETHASONE
     Indication: Acute lymphocytic leukaemia
  9. ESOMEPRAZOLE SODIUM [Concomitant]
     Active Substance: ESOMEPRAZOLE SODIUM
     Indication: Proctitis
     Dosage: 40 MG, Q12H

REACTIONS (5)
  - Acute kidney injury [Recovering/Resolving]
  - Drug interaction [Recovering/Resolving]
  - Blood creatinine increased [Recovering/Resolving]
  - Drug clearance increased [Recovering/Resolving]
  - Myelosuppression [Recovering/Resolving]

NARRATIVE: CASE EVENT DATE: 20220401
